FAERS Safety Report 8232240-8 (Version None)
Quarter: 2012Q1

REPORT INFORMATION
  Report Type: 
  Country: None (occurrence: None)
  Receive Date: 20120323
  Receipt Date: 20120309
  Transmission Date: 20120608
  Serious: Yes (Hospitalization)
  Sender: FDA-Public Use
  Company Number: FR-ACTELION-A-CH2012-62512

PATIENT
  Age: 68 Year
  Sex: Male
  Weight: 70 kg

DRUGS (8)
  1. ASPIRIN [Concomitant]
  2. ARANESP [Concomitant]
  3. ALFUZOSIN HCL [Concomitant]
  4. TRACLEER [Suspect]
     Indication: SCLERODERMA RENAL CRISIS
     Dosage: 125 MG, BID
     Route: 048
     Dates: start: 20111128
  5. TRACLEER [Suspect]
     Dosage: 62.5 MG, BID
     Route: 048
     Dates: start: 20111031, end: 20111127
  6. AVODART [Concomitant]
  7. PERINDOPRIL ERBUMINE [Concomitant]
  8. LASIX [Concomitant]

REACTIONS (4)
  - URINARY RETENTION [None]
  - BLADDER CATHETERISATION [None]
  - TRANSURETHRAL PROSTATECTOMY [None]
  - BENIGN PROSTATIC HYPERPLASIA [None]
